FAERS Safety Report 7413862-0 (Version None)
Quarter: 2011Q2

REPORT INFORMATION
  Report Type: 
  Country: None (occurrence: None)
  Receive Date: 20110414
  Receipt Date: 20110406
  Transmission Date: 20111010
  Serious: Yes (Hospitalization)
  Sender: FDA-Public Use
  Company Number: AR-AMGEN-ARGSP2011019171

PATIENT
  Age: 55 Year
  Sex: Female
  Weight: 55 kg

DRUGS (3)
  1. PREDNISONE [Concomitant]
     Dosage: 5 MG, 1X/DAY
     Route: 048
  2. ENBREL [Suspect]
     Indication: RHEUMATOID ARTHRITIS
     Dosage: 50 MG, WEEKLY
     Route: 058
     Dates: start: 20090601, end: 20100601
  3. DICLOFENAC [Suspect]
     Dosage: 75 MG, 2X/DAY
     Route: 048

REACTIONS (2)
  - GASTRIC HAEMORRHAGE [None]
  - IRRITABLE BOWEL SYNDROME [None]
